FAERS Safety Report 5092007-9 (Version None)
Quarter: 2006Q3

REPORT INFORMATION
  Report Type: 
  Country: None (occurrence: None)
  Receive Date: 20060825
  Receipt Date: 20060811
  Transmission Date: 20061208
  Serious: Yes (Life-Threatening, Hospitalization)
  Sender: FDA-Public Use
  Company Number: GB200608002354

PATIENT
  Age: 72 Year
  Sex: Male

DRUGS (12)
  1. GEMCITABINE [Suspect]
     Dates: start: 20060201
  2. CARBOPLATIN [Concomitant]
  3. AMOXICILLIN [Concomitant]
  4. OMEPRAZOLE [Concomitant]
  5. SIMVASTATIN [Concomitant]
  6. ACETYLSALICYLIC ACID [Concomitant]
  7. ATENOLOL [Concomitant]
  8. CHLORDIAZEPOXIDE [Concomitant]
  9. CIPROFLOXACIN [Concomitant]
  10. CLARITHROMYCIN [Concomitant]
  11. CORACTEN (NIFEDIPINE) [Concomitant]
  12. GRANISETRON [Concomitant]

REACTIONS (2)
  - RENAL FAILURE ACUTE [None]
  - RHABDOMYOLYSIS [None]
